FAERS Safety Report 11722378 (Version 1)
Quarter: 2015Q4

REPORT INFORMATION
  Report Type: Spontaneous
  Country: US (occurrence: None)
  Receive Date: 20151110
  Receipt Date: 20151110
  Transmission Date: 20160304
  Serious: No
  Sender: FDA-Public Use
  Company Number: None

PATIENT
  Age: 19 Year
  Sex: Female

DRUGS (1)
  1. ORKAMBI [Suspect]
     Active Substance: IVACAFTOR\LUMACAFTOR
     Indication: CYSTIC FIBROSIS
     Dosage: 2 TABS BID ORAL
     Route: 048
     Dates: start: 20151016

REACTIONS (2)
  - Pulmonary congestion [None]
  - Nasal congestion [None]

NARRATIVE: CASE EVENT DATE: 20151017
